FAERS Safety Report 20711908 (Version 10)
Quarter: 2023Q4

REPORT INFORMATION
  Report Type: Spontaneous
  Country: US (occurrence: US)
  Receive Date: 20220414
  Receipt Date: 20231122
  Transmission Date: 20240110
  Serious: Yes (Other)
  Sender: FDA-Public Use
  Company Number: US-PFIZER INC-202101871742

PATIENT
  Age: 74 Year
  Sex: Female
  Weight: 59.87 kg

DRUGS (11)
  1. IBRANCE [Suspect]
     Active Substance: PALBOCICLIB
     Indication: Breast cancer metastatic
     Dosage: 125 MG, CYCLIC (125MG ONCE DAILY FOR 21 DAYS, 7 DAYS OFF)
     Route: 048
     Dates: start: 20210927
  2. IBRANCE [Suspect]
     Active Substance: PALBOCICLIB
     Indication: Breast cancer female
     Dosage: 100 MG
     Dates: start: 20230629
  3. IBRANCE [Suspect]
     Active Substance: PALBOCICLIB
     Indication: Metastases to bone
     Dosage: 100 MG, DAILY (FOR 21 DAYS AND THEN REST FOR 7 DAYS)
     Route: 048
  4. FULVESTRANT [Concomitant]
     Active Substance: FULVESTRANT
     Dosage: UNK (EVERY 2 WEEKS FOR 3 TIMES AND THEN AFTER THAT EVERY 4 WEEKS)
  5. LAMICTAL [Concomitant]
     Active Substance: LAMOTRIGINE
     Indication: Epilepsy
     Dosage: UNK
  6. ZYRTEC [Concomitant]
     Active Substance: CETIRIZINE HYDROCHLORIDE
     Dosage: UNK
  7. SINGULAIR [Concomitant]
     Active Substance: MONTELUKAST SODIUM
     Indication: Asthma
     Dosage: UNK
  8. OXYBUTYNIN [Concomitant]
     Active Substance: OXYBUTYNIN
     Dosage: UNK (HALF AT NIGHT)
  9. ASMANEX [Concomitant]
     Active Substance: MOMETASONE FUROATE
     Dosage: UNK
  10. ZOMETA [Concomitant]
     Active Substance: ZOLEDRONIC ACID
     Indication: Osteoporosis
     Dosage: UNK (INFUSION EVERY 3 MONTHS)
  11. TRANXENE [Concomitant]
     Active Substance: CLORAZEPATE DIPOTASSIUM
     Indication: Anxiety
     Dosage: UNK

REACTIONS (17)
  - Concussion [Recovering/Resolving]
  - Pituitary tumour benign [Unknown]
  - Alopecia [Not Recovered/Not Resolved]
  - Hair texture abnormal [Unknown]
  - Asthenia [Unknown]
  - Frustration tolerance decreased [Unknown]
  - Body height decreased [Unknown]
  - Hypoacusis [Unknown]
  - Brain fog [Unknown]
  - Speech disorder [Unknown]
  - Accident [Unknown]
  - Amnesia [Unknown]
  - Memory impairment [Unknown]
  - Confusional state [Unknown]
  - Aphasia [Unknown]
  - Illness [Not Recovered/Not Resolved]
  - Inner ear disorder [Unknown]

NARRATIVE: CASE EVENT DATE: 20210101
